FAERS Safety Report 6886303-X (Version None)
Quarter: 2010Q3

REPORT INFORMATION
  Report Type: 
  Country: None (occurrence: None)
  Receive Date: 20100729
  Receipt Date: 20090408
  Transmission Date: 20110219
  Serious: No
  Sender: FDA-Public Use
  Company Number: US-PFIZER INC-2009156539

PATIENT
  Sex: Female
  Weight: 58.1 kg

DRUGS (2)
  1. CELEBREX [Suspect]
     Indication: INFLAMMATION
     Dosage: UNK
     Route: 048
     Dates: start: 20090129, end: 20090129
  2. VICODIN [Concomitant]
     Dosage: UNK

REACTIONS (3)
  - DIZZINESS [None]
  - VERTIGO [None]
  - VOMITING [None]
